FAERS Safety Report 16624325 (Version 1)
Quarter: 2019Q3

REPORT INFORMATION
  Report Type: Spontaneous
  Country: AU (occurrence: AU)
  Receive Date: 20190724
  Receipt Date: 20190724
  Transmission Date: 20191004
  Serious: Yes (Other)
  Sender: FDA-Public Use
  Company Number: AU-ABBVIE-19K-008-2822808-00

PATIENT
  Age: 20 Year
  Sex: Male
  Weight: 70 kg

DRUGS (6)
  1. HUMIRA [Suspect]
     Active Substance: ADALIMUMAB
     Route: 058
     Dates: start: 201906
  2. AZATHIOPRINE. [Concomitant]
     Active Substance: AZATHIOPRINE
     Indication: PRODUCT USED FOR UNKNOWN INDICATION
     Dates: start: 201906
  3. PARACETOMOL [Concomitant]
     Active Substance: ACETAMINOPHEN
     Indication: PAIN
     Dosage: AS NEEDED
  4. HUMIRA [Suspect]
     Active Substance: ADALIMUMAB
     Indication: CROHN^S DISEASE
     Route: 058
  5. PANTOPRAZOLE [Concomitant]
     Active Substance: PANTOPRAZOLE
     Indication: PRODUCT USED FOR UNKNOWN INDICATION
     Route: 048
  6. HUMIRA [Suspect]
     Active Substance: ADALIMUMAB
     Route: 058
     Dates: start: 201901, end: 2019

REACTIONS (17)
  - Small intestinal obstruction [Unknown]
  - Peripancreatic fluid collection [Unknown]
  - Weight decreased [Recovered/Resolved]
  - Inflammation [Unknown]
  - Diarrhoea [Recovered/Resolved]
  - Pancreatitis acute [Recovered/Resolved]
  - Pulmonary oedema [Unknown]
  - Incision site pain [Unknown]
  - Hepatic steatosis [Unknown]
  - Hepatosplenomegaly [Unknown]
  - Ileal stenosis [Not Recovered/Not Resolved]
  - Lipase increased [Unknown]
  - Thrombocytosis [Not Recovered/Not Resolved]
  - Pleural effusion [Unknown]
  - Ileal stenosis [Unknown]
  - Epigastric discomfort [Not Recovered/Not Resolved]
  - Enteritis [Unknown]

NARRATIVE: CASE EVENT DATE: 201901
